FAERS Safety Report 8386528-0 (Version None)
Quarter: 2012Q2

REPORT INFORMATION
  Report Type: 
  Country: None (occurrence: None)
  Receive Date: 20120525
  Receipt Date: 20110503
  Transmission Date: 20120825
  Serious: No
  Sender: FDA-Public Use
  Company Number: US-GLAXOSMITHKLINE-A0925571A

PATIENT
  Age: 79 Year
  Sex: Male

DRUGS (2)
  1. NO CONCURRENT MEDICATION [Concomitant]
  2. VERAMYST [Suspect]
     Indication: SINUS DISORDER
     Dosage: 2SPR PER DAY
     Route: 045
     Dates: start: 20110201

REACTIONS (1)
  - NAUSEA [None]
